FAERS Safety Report 14782738 (Version 1)
Quarter: 2018Q2

REPORT INFORMATION
  Report Type: Spontaneous
  Country: FR (occurrence: FR)
  Receive Date: 20180420
  Receipt Date: 20180420
  Transmission Date: 20180711
  Serious: Yes (Other)
  Sender: FDA-Public Use
  Company Number: FR-MERCK KGAA-2046132

PATIENT
  Age: 69 Year
  Sex: Female
  Weight: 62 kg

DRUGS (3)
  1. NOVOTHYROX [Suspect]
     Active Substance: LEVOTHYROXINE SODIUM
     Dates: start: 20171106
  2. LIPTRUZET(ZETITOR) [Concomitant]
     Dates: start: 20170916
  3. NOVOTHYROX [Suspect]
     Active Substance: LEVOTHYROXINE SODIUM
     Indication: PRODUCT USED FOR UNKNOWN INDICATION
     Dates: start: 201709

REACTIONS (34)
  - Feeling cold [None]
  - Dizziness [None]
  - Disturbance in attention [None]
  - Asocial behaviour [None]
  - Gait disturbance [None]
  - Depression [None]
  - Hyperhidrosis [None]
  - Amnesia [None]
  - Pain [None]
  - Balance disorder [None]
  - Middle insomnia [None]
  - Sleep disorder [None]
  - Hypertension [None]
  - Nervousness [None]
  - Impatience [None]
  - Arrhythmia [Recovering/Resolving]
  - Myalgia [None]
  - Alopecia [None]
  - Anxiety [None]
  - Blood pressure fluctuation [None]
  - Initial insomnia [None]
  - Weight decreased [None]
  - Head discomfort [None]
  - Temperature intolerance [None]
  - Tinnitus [None]
  - Arthralgia [None]
  - Asthenia [None]
  - Bone pain [None]
  - Dyspnoea [None]
  - Loss of personal independence in daily activities [None]
  - Fatigue [None]
  - Irritability [None]
  - Decreased interest [None]
  - Psychiatric symptom [None]

NARRATIVE: CASE EVENT DATE: 2017
